FAERS Safety Report 20614790 (Version 1)
Quarter: 2022Q1

REPORT INFORMATION
  Report Type: Spontaneous
  Country: NL (occurrence: NL)
  Receive Date: 20220321
  Receipt Date: 20220321
  Transmission Date: 20220423
  Serious: Yes (Other)
  Sender: FDA-Public Use
  Company Number: NL-NOVOPROD-899791

PATIENT
  Age: 28 Year
  Sex: Female

DRUGS (2)
  1. NOVOSEVEN [Suspect]
     Active Substance: COAGULATION FACTOR VIIA RECOMBINANT HUMAN
     Indication: Prophylaxis
  2. NOVOSEVEN [Suspect]
     Active Substance: COAGULATION FACTOR VIIA RECOMBINANT HUMAN
     Indication: Von Willebrand^s disease
     Dosage: 90?G/KG EVERY 2H.
     Route: 065

REACTIONS (5)
  - Pulmonary embolism [Unknown]
  - Pelvic venous thrombosis [Unknown]
  - Vaginal haemorrhage [Unknown]
  - Drug ineffective [Unknown]
  - Off label use [Unknown]
